FAERS Safety Report 22525081 (Version 1)
Quarter: 2023Q2

REPORT INFORMATION
  Report Type: Spontaneous
  Country: CA (occurrence: CA)
  Receive Date: 20230606
  Receipt Date: 20230606
  Transmission Date: 20230721
  Serious: Yes (Other)
  Sender: FDA-Public Use
  Company Number: CA-PFIZER INC-202300012737

PATIENT
  Age: 52 Year
  Sex: Female

DRUGS (8)
  1. ABRILADA [Suspect]
     Active Substance: ADALIMUMAB-AFZB
     Indication: Colitis ulcerative
     Dosage: 1 DF, EVERY 2 WEEK, 160MG W0, 80MG W2 THEN 40MG Q 2 WEEKS STARTING W4
     Route: 058
     Dates: start: 20221229
  2. ABRILADA [Suspect]
     Active Substance: ADALIMUMAB-AFZB
     Dosage: 1 DF, (WEEK 2)
     Route: 058
     Dates: start: 20230112
  3. ABRILADA [Suspect]
     Active Substance: ADALIMUMAB-AFZB
     Dosage: 1 DF, (WEEK 3)
     Route: 058
     Dates: start: 20230119
  4. ABRILADA [Suspect]
     Active Substance: ADALIMUMAB-AFZB
     Dosage: 1 DF, 160MG W0, 80MG W2 THEN 40MG Q 2 WEEKS STARTING W4
     Route: 058
     Dates: start: 20230126
  5. ABRILADA [Suspect]
     Active Substance: ADALIMUMAB-AFZB
     Dosage: 1 DF, 160MG W0, 80MG W2 THEN 40MG Q 2 WEEKS STARTING W4
     Route: 058
     Dates: start: 20230213
  6. ABRILADA [Suspect]
     Active Substance: ADALIMUMAB-AFZB
     Dosage: 1 DF, 160MG W0, 80MG W2 THEN 40MG Q 2 WEEKS STARTING W4
     Route: 058
     Dates: start: 20230327
  7. MESALAMINE [Concomitant]
     Active Substance: MESALAMINE
     Dosage: 1 DF, DOSAGE INFORMATION NOT AVAILABLE
     Route: 065
  8. PREDNISONE [Concomitant]
     Active Substance: PREDNISONE
     Dosage: 1 DF, DOSAGE INFORMATION NOT AVAILABLE
     Route: 065

REACTIONS (6)
  - Upper respiratory tract infection [Recovering/Resolving]
  - Bronchospasm [Recovering/Resolving]
  - COVID-19 [Recovered/Resolved]
  - Influenza like illness [Recovering/Resolving]
  - Pyrexia [Recovered/Resolved]
  - Musculoskeletal pain [Recovering/Resolving]

NARRATIVE: CASE EVENT DATE: 20221229
